FAERS Safety Report 9249844 (Version 1)
Quarter: 2013Q2

REPORT INFORMATION
  Report Type: Spontaneous
  Country: HU (occurrence: HU)
  Receive Date: 20130423
  Receipt Date: 20130423
  Transmission Date: 20140414
  Serious: Yes (Other)
  Sender: FDA-Public Use
  Company Number: HU-B.I. PHARMACEUTICALS,INC./RIDGEFIELD-2013-AP-00297AP

PATIENT
  Age: 54 Year
  Sex: Male

DRUGS (3)
  1. JENTADUETO [Suspect]
     Indication: TYPE 2 DIABETES MELLITUS
     Dosage: 2 ANZ
     Route: 048
  2. N.A. [Concomitant]
     Indication: HYPERTENSION
  3. N.A [Concomitant]
     Indication: HYPERCHOLESTEROLAEMIA

REACTIONS (4)
  - Pancreatitis acute [Recovered/Resolved]
  - Flatulence [Unknown]
  - Abdominal pain [Unknown]
  - Vomiting [Unknown]
